FAERS Safety Report 24882780 (Version 1)
Quarter: 2025Q1

REPORT INFORMATION
  Report Type: Spontaneous
  Country: US (occurrence: None)
  Receive Date: 20250123
  Receipt Date: 20250123
  Transmission Date: 20250409
  Serious: Yes (Hospitalization)
  Sender: FDA-CTU
  Company Number: None

PATIENT
  Age: 77 Year
  Sex: Male
  Weight: 103 kg

DRUGS (1)
  1. LITHIUM CARBONATE [Suspect]
     Active Substance: LITHIUM CARBONATE
     Dosage: FREQUENCY : TWICE A DAY;?

REACTIONS (3)
  - Toxicity to various agents [None]
  - Mental status changes [None]
  - Dialysis [None]

NARRATIVE: CASE EVENT DATE: 20250122
